FAERS Safety Report 11146181 (Version 1)
Quarter: 2015Q2

REPORT INFORMATION
  Report Type: Spontaneous
  Country: IN (occurrence: None)
  Receive Date: 20150526
  Receipt Date: 20150526
  Transmission Date: 20150821
  Serious: Yes (Hospitalization, Other)
  Sender: FDA-Public Use
  Company Number: IN-ZYDUS-008133

PATIENT
  Age: 69 Year
  Sex: Male

DRUGS (2)
  1. LERCANIDIPINE [Suspect]
     Active Substance: LERCANIDIPINE
     Indication: PRODUCT USED FOR UNKNOWN INDICATION
     Route: 048
  2. AMLODIPINE [Suspect]
     Active Substance: AMLODIPINE BESYLATE
     Indication: PRODUCT USED FOR UNKNOWN INDICATION
     Route: 048

REACTIONS (10)
  - Bundle branch block right [None]
  - Anxiety [None]
  - Respiratory alkalosis [None]
  - Bradycardia [None]
  - Intentional overdose [None]
  - Cardiac arrest [None]
  - Shock [None]
  - Peripheral coldness [None]
  - Metabolic acidosis [None]
  - Anuria [None]
